FAERS Safety Report 15037020 (Version 7)
Quarter: 2019Q1

REPORT INFORMATION
  Report Type: Report from Study
  Country: US (occurrence: US)
  Receive Date: 20180620
  Receipt Date: 20190109
  Transmission Date: 20190417
  Serious: Yes (Hospitalization, Other)
  Sender: FDA-Public Use
  Company Number: US-TAKEDA-2018TUS019816

PATIENT
  Sex: Male

DRUGS (3)
  1. PONATINIB [Suspect]
     Active Substance: PONATINIB
     Indication: ACUTE LYMPHOCYTIC LEUKAEMIA (IN REMISSION)
     Dosage: 45 MG, QD
     Route: 048
     Dates: start: 201805
  2. PONATINIB [Suspect]
     Active Substance: PONATINIB
     Dosage: 30 MG, QD
     Route: 048
  3. PONATINIB [Suspect]
     Active Substance: PONATINIB
     Dosage: 15 MG, QD
     Route: 048

REACTIONS (13)
  - Paraplegia [Unknown]
  - Gastric dilatation [Unknown]
  - Balance disorder [Unknown]
  - Muscle spasms [Unknown]
  - Tremor [Unknown]
  - Muscular weakness [Unknown]
  - Gait inability [Unknown]
  - Hypoaesthesia [Unknown]
  - Pneumonia [Unknown]
  - Fatigue [Unknown]
  - Urinary tract infection [Unknown]
  - Urinary tract obstruction [Unknown]
  - Abdominal discomfort [Unknown]
